FAERS Safety Report 14262099 (Version 1)
Quarter: 2017Q4

REPORT INFORMATION
  Report Type: Spontaneous
  Country: US (occurrence: US)
  Receive Date: 20171208
  Receipt Date: 20171208
  Transmission Date: 20180321
  Serious: No
  Sender: FDA-Public Use
  Company Number: US-NOVOPROD-533129

PATIENT
  Age: 62 Year
  Sex: Male

DRUGS (1)
  1. NOVOLIN R [Suspect]
     Active Substance: INSULIN HUMAN
     Indication: TYPE 2 DIABETES MELLITUS
     Dosage: 10 U, TID, BEFORE EACH MEAL
     Route: 058
     Dates: start: 20170216, end: 20170219

REACTIONS (3)
  - Heart rate increased [Recovered/Resolved]
  - Heart rate irregular [Recovered/Resolved]
  - Blood glucose increased [Recovered/Resolved]

NARRATIVE: CASE EVENT DATE: 20170216
